FAERS Safety Report 10160939 (Version 1)
Quarter: 2014Q2

REPORT INFORMATION
  Report Type: Spontaneous
  Country: US (occurrence: US)
  Receive Date: 20140508
  Receipt Date: 20140508
  Transmission Date: 20141212
  Serious: Yes (Other)
  Sender: FDA-Public Use
  Company Number: ALCN2014US002759

PATIENT
  Age: 7 Year
  Sex: Male

DRUGS (4)
  1. CIPROFLOXACIN [Suspect]
     Indication: OTORRHOEA
     Dosage: UNK
     Route: 061
  2. CEFTAZIDIME [Suspect]
     Indication: OTORRHOEA
     Dosage: UNK
     Route: 042
  3. AMOXICILLIN [Suspect]
     Indication: OTORRHOEA
     Dosage: UNK
     Route: 048
  4. AZITHROMYCIN [Suspect]
     Indication: OTORRHOEA
     Route: 048

REACTIONS (3)
  - Infection [Recovered/Resolved]
  - Ear infection fungal [Recovered/Resolved]
  - Drug ineffective [Recovered/Resolved]
